FAERS Safety Report 4384810-5 (Version None)
Quarter: 2004Q2

REPORT INFORMATION
  Report Type: 
  Country: None (occurrence: None)
  Receive Date: 20040621
  Receipt Date: 20040615
  Transmission Date: 20050107
  Serious: Yes (Hospitalization, Other)
  Sender: FDA-Public Use
  Company Number: HQ5038421AUG2001

PATIENT
  Age: 26 Year
  Sex: Male

DRUGS (11)
  1. RAPAMUNE [Suspect]
     Indication: IMMUNOSUPPRESSION
     Dosage: 4 MG 1X PER 1 DAY ORAL
     Route: 048
     Dates: start: 20010505
  2. PREDNISOLONE [Concomitant]
  3. CYCLOSPORINE [Concomitant]
  4. PENICILLIN V [Concomitant]
  5. LOSEC (OMEPRAZOLE) [Concomitant]
  6. BISOPROLOL FUMARATE [Concomitant]
  7. ADALAT - SLOW RELEASE (NIFEDIPINE) [Concomitant]
  8. DOCUSATE SODIUM (DOCUSATE SODIUM) [Concomitant]
  9. MOVECIL (PYRICARBATE) [Concomitant]
  10. RAMIPRIL (RAMIPRIL0 [Concomitant]
  11. DOXAZOSIN (DOXAZOSIN) [Concomitant]

REACTIONS (1)
  - KIDNEY TRANSPLANT REJECTION [None]
